FAERS Safety Report 25273379 (Version 1)
Quarter: 2025Q2

REPORT INFORMATION
  Report Type: Spontaneous
  Country: US (occurrence: None)
  Receive Date: 20250505
  Receipt Date: 20250505
  Transmission Date: 20250716
  Serious: Yes (Hospitalization)
  Sender: FDA-CTU
  Company Number: None

PATIENT
  Age: 69 Year
  Sex: Male

DRUGS (5)
  1. ENBREL [Suspect]
     Active Substance: ETANERCEPT
     Indication: Ankylosing spondylitis
     Dosage: FREQUENCY : WEEKLY;?
     Route: 058
     Dates: start: 20220208
  2. BETOPTIC-5 SUS 0.25% OP [Concomitant]
  3. FLUTICASONE [Concomitant]
     Active Substance: FLUTICASONE
  4. LORATADINE TAB 10MG [Concomitant]
  5. LOSARTAN POT TAB 50MG [Concomitant]

REACTIONS (2)
  - Drug ineffective [None]
  - Therapy interrupted [None]

NARRATIVE: CASE EVENT DATE: 20250321
